FAERS Safety Report 19925903 (Version 3)
Quarter: 2021Q4

REPORT INFORMATION
  Report Type: Report from Study
  Country: None (occurrence: US)
  Receive Date: 20211007
  Receipt Date: 20211011
  Transmission Date: 20220303
  Serious: Yes (Hospitalization, Other)
  Sender: FDA-Public Use
  Company Number: US-ABBVIE-21K-163-4106490-00

PATIENT
  Sex: Female
  Weight: 99.43 kg

DRUGS (6)
  1. HUMIRA [Suspect]
     Active Substance: ADALIMUMAB
     Indication: Rheumatoid arthritis
     Route: 058
     Dates: start: 200711, end: 2021
  2. HUMIRA [Suspect]
     Active Substance: ADALIMUMAB
     Route: 058
     Dates: start: 202106, end: 202108
  3. HUMIRA [Suspect]
     Active Substance: ADALIMUMAB
     Route: 058
     Dates: start: 202108, end: 20210915
  4. DULOXETINE [Concomitant]
     Active Substance: DULOXETINE
     Indication: Pain
  5. FOLIC ACID [Concomitant]
     Active Substance: FOLIC ACID
     Indication: Adjuvant therapy
  6. LEFLUNOMIDE [Concomitant]
     Active Substance: LEFLUNOMIDE
     Indication: Rheumatoid arthritis

REACTIONS (13)
  - Rheumatoid nodule [Unknown]
  - Nodule [Unknown]
  - Diabetes mellitus [Recovering/Resolving]
  - Elbow operation [Unknown]
  - Tuberculosis [Not Recovered/Not Resolved]
  - Rheumatoid factor increased [Not Recovered/Not Resolved]
  - Mycobacterium tuberculosis complex test positive [Not Recovered/Not Resolved]
  - Nervous system disorder [Unknown]
  - Fall [Recovered/Resolved]
  - Blood calcium decreased [Recovering/Resolving]
  - Injection site pain [Not Recovered/Not Resolved]
  - Pain in extremity [Recovering/Resolving]
  - Infection [Not Recovered/Not Resolved]

NARRATIVE: CASE EVENT DATE: 20070101
